FAERS Safety Report 4579649-1 (Version None)
Quarter: 2005Q1

REPORT INFORMATION
  Report Type: 
  Country: None (occurrence: None)
  Receive Date: 20050210
  Receipt Date: 20050207
  Transmission Date: 20050727
  Serious: Yes (Disabling)
  Sender: FDA-Public Use
  Company Number: THQ2005A00167

PATIENT
  Age: 34 Year
  Sex: Female

DRUGS (6)
  1. LANSOPRAZOLE [Suspect]
     Indication: HELICOBACTER INFECTION
     Dosage: 60 MG (30 MG, 2 IN 1 D) PER ORAL
     Route: 048
     Dates: start: 20050108, end: 20050110
  2. CODAFEN [Concomitant]
  3. METRONIDAZOLE [Concomitant]
  4. OXYBUTYNIN [Concomitant]
  5. FOLIC ACID [Concomitant]
  6. AMOXICILLIN [Concomitant]

REACTIONS (2)
  - FACIAL PAIN [None]
  - VISUAL DISTURBANCE [None]
